FAERS Safety Report 8943322 (Version 1)
Quarter: 2012Q4

REPORT INFORMATION
  Report Type: 
  Country: FR (occurrence: FR)
  Receive Date: 20121204
  Receipt Date: 20121204
  Transmission Date: 20130627
  Serious: Yes (Hospitalization, Other)
  Sender: FDA-Public Use
  Company Number: FR-ELI_LILLY_AND_COMPANY-FR201211008006

PATIENT
  Age: 69 Year
  Sex: Female

DRUGS (5)
  1. EFIENT [Suspect]
     Indication: PROPHYLAXIS
     Dosage: 10 mg, unknown
     Route: 048
  2. KARDEGIC [Concomitant]
     Indication: PROPHYLAXIS
     Dosage: UNK
     Dates: start: 201108, end: 20120423
  3. CRESTOR [Concomitant]
     Indication: DYSLIPIDAEMIA
     Dosage: 10 mg, UNK
  4. CARDENSIEL [Concomitant]
     Indication: CARDIAC FAILURE CHRONIC
     Dosage: 5 mg, UNK
  5. INIPOMP [Concomitant]
     Dosage: 10 mg, UNK

REACTIONS (3)
  - Rectal haemorrhage [Recovered/Resolved]
  - Microcytic anaemia [Not Recovered/Not Resolved]
  - Rectal polyp [Unknown]
